FAERS Safety Report 14185970 (Version 1)
Quarter: 2017Q4

REPORT INFORMATION
  Report Type: Spontaneous
  Country: US (occurrence: None)
  Receive Date: 20171112
  Receipt Date: 20171112
  Transmission Date: 20180321
  Serious: No
  Sender: FDA-Public Use
  Company Number: None

PATIENT
  Age: 36 Year
  Sex: Male

DRUGS (1)
  1. HARVONI [Suspect]
     Active Substance: LEDIPASVIR\SOFOSBUVIR
     Indication: CHRONIC HEPATITIS C
     Dosage: 1 TABLET DAILY PO
     Route: 048
     Dates: start: 20170823

REACTIONS (3)
  - Pulmonary congestion [None]
  - Nasopharyngitis [None]
  - Paranasal sinus discomfort [None]

NARRATIVE: CASE EVENT DATE: 20170927
